FAERS Safety Report 6408396-6 (Version None)
Quarter: 2009Q4

REPORT INFORMATION
  Report Type: 
  Country: None (occurrence: None)
  Receive Date: 20091021
  Receipt Date: 20091012
  Transmission Date: 20100525
  Serious: Yes (Other)
  Sender: FDA-Public Use
  Company Number: US-JNJFOC-20091004335

PATIENT
  Age: 59 Year
  Sex: Female
  Weight: 71.1 kg

DRUGS (16)
  1. RISPERIDONE [Suspect]
     Indication: PSYCHOTIC DISORDER
     Route: 065
  2. SIMVASTATIN [Interacting]
     Indication: HYPERLIPIDAEMIA
     Route: 065
  3. DIVALPROEX SODIUM [Interacting]
     Route: 065
  4. DIVALPROEX SODIUM [Interacting]
     Dosage: 250 MG IN THE MORNING AND 500 MG IN THE EVENING
     Route: 065
  5. DIVALPROEX SODIUM [Interacting]
     Indication: CONVULSION
     Route: 065
  6. GLIPIZIDE [Interacting]
     Indication: TYPE 2 DIABETES MELLITUS
     Route: 065
  7. BROMOCRIPTINE [Interacting]
     Indication: ADVERSE EVENT
     Route: 065
  8. HYDROCHLOROTHIAZIDE [Interacting]
     Indication: HYPERTENSION
     Route: 065
  9. BENAZEPRIL HYDROCHLORIDE [Concomitant]
     Indication: HYPERTENSION
     Route: 065
  10. ATENOLOL [Concomitant]
     Indication: HYPERTENSION
     Route: 065
  11. NIACIN [Concomitant]
     Indication: HYPERLIPIDAEMIA
     Route: 065
  12. ASPIRIN [Concomitant]
     Indication: PROPHYLAXIS
     Route: 065
  13. LEVOTHYROXINE SODIUM [Concomitant]
     Indication: HYPOTHYROIDISM
     Route: 065
  14. RANITIDINE [Concomitant]
     Indication: GASTROOESOPHAGEAL REFLUX DISEASE
     Route: 065
  15. LACTULOSE [Concomitant]
     Indication: CONSTIPATION
     Route: 065
  16. MULTI-VITAMINS [Concomitant]
     Route: 065

REACTIONS (8)
  - ABNORMAL BEHAVIOUR [None]
  - CONFUSIONAL STATE [None]
  - DIZZINESS [None]
  - DRUG INTERACTION [None]
  - DRUG TOXICITY [None]
  - INCOHERENT [None]
  - LETHARGY [None]
  - TREMOR [None]
